FAERS Safety Report 7297557-2 (Version None)
Quarter: 2011Q1

REPORT INFORMATION
  Report Type: 
  Country: None (occurrence: None)
  Receive Date: 20110216
  Receipt Date: 20110207
  Transmission Date: 20110831
  Serious: Yes (Hospitalization, Other)
  Sender: FDA-Public Use
  Company Number: US-BAXTER-2011BH001585

PATIENT
  Age: 44 Year
  Sex: Male

DRUGS (1)
  1. DIANEAL [Suspect]
     Route: 033

REACTIONS (4)
  - VOMITING [None]
  - BLOODY PERITONEAL EFFLUENT [None]
  - IMPAIRED GASTRIC EMPTYING [None]
  - NAUSEA [None]
